FAERS Safety Report 11883552 (Version 2)
Quarter: 2016Q1

REPORT INFORMATION
  Report Type: Spontaneous
  Country: US (occurrence: US)
  Receive Date: 20151231
  Receipt Date: 20160110
  Transmission Date: 20160526
  Serious: Yes (Death)
  Sender: FDA-Public Use
  Company Number: PHHY2015US170722

PATIENT
  Age: 25 Year
  Sex: Male

DRUGS (3)
  1. SIROLIMUS. [Suspect]
     Active Substance: SIROLIMUS
     Indication: KAPOSI^S SARCOMA
     Route: 065
  2. OCTREOTIDE. [Suspect]
     Active Substance: OCTREOTIDE
     Indication: KAPOSI^S SARCOMA
     Route: 065
  3. MIDODRINE [Suspect]
     Active Substance: MIDODRINE
     Indication: KAPOSI^S SARCOMA
     Route: 065

REACTIONS (2)
  - Kaposi^s sarcoma [Fatal]
  - Product use issue [Unknown]
